FAERS Safety Report 6750020-7 (Version None)
Quarter: 2010Q2

REPORT INFORMATION
  Report Type: 
  Country: None (occurrence: None)
  Receive Date: 20100601
  Receipt Date: 20100527
  Transmission Date: 20101027
  Serious: Yes (Hospitalization)
  Sender: FDA-Public Use
  Company Number: GXKR2010DE02231

PATIENT
  Age: 74 Year
  Sex: Female
  Weight: 75 kg

DRUGS (12)
  1. MIRTAZAPINE [Suspect]
     Indication: LEUKOENCEPHALOPATHY
     Dosage: UNK
     Route: 048
     Dates: start: 20091028, end: 20100105
  2. PREDNISOLONE (NGX) [Suspect]
     Indication: HASHIMOTO'S ENCEPHALOPATHY
     Dosage: 5 MG, QD
     Route: 048
     Dates: start: 20091001
  3. LARIAM                                  /AUT/ [Suspect]
     Indication: LEUKOENCEPHALOPATHY
     Dosage: 250 MG, QD
     Route: 048
     Dates: start: 20091028, end: 20100104
  4. DIGITOXIN [Concomitant]
  5. CALCILAC KT [Concomitant]
  6. SPIRONOLACTONE [Concomitant]
  7. KARVEA [Concomitant]
  8. ACTRAPID HUMAN [Concomitant]
  9. PANTOZOL [Interacting]
     Indication: REFLUX OESOPHAGITIS
     Dosage: 40 MG, BID
     Route: 048
     Dates: start: 20090601
  10. ASPIRIN [Concomitant]
     Indication: CORONARY ARTERY DISEASE
     Dosage: 100 MG, QD
     Route: 048
     Dates: start: 20090901
  11. TORSEMIDE [Interacting]
     Indication: RENAL FAILURE CHRONIC
     Dosage: 10 MG, QD
     Route: 048
     Dates: start: 20090601
  12. ISCOVER [Interacting]
     Indication: CORONARY ARTERY DISEASE
     Dosage: 75 MG, QD
     Route: 048
     Dates: start: 20090901

REACTIONS (2)
  - LEUKOPENIA [None]
  - PYREXIA [None]
